FAERS Safety Report 5778743-7 (Version None)
Quarter: 2008Q2

REPORT INFORMATION
  Report Type: 
  Country: None (occurrence: None)
  Receive Date: 20080618
  Receipt Date: 20080618
  Transmission Date: 20081010
  Serious: Yes (Life-Threatening, Hospitalization)
  Sender: FDA-Public Use
  Company Number: None

PATIENT
  Age: 57 Year
  Sex: Female
  Weight: 96.6162 kg

DRUGS (1)
  1. EVISTA [Suspect]
     Indication: MENOPAUSE
     Dosage: 60 MG DAILY PO
     Route: 048
     Dates: start: 19980515, end: 20070615

REACTIONS (2)
  - DEEP VEIN THROMBOSIS [None]
  - PULMONARY THROMBOSIS [None]
